FAERS Safety Report 19439019 (Version 1)
Quarter: 2021Q2

REPORT INFORMATION
  Report Type: Report from Study
  Country: US (occurrence: US)
  Receive Date: 20210618
  Receipt Date: 20210618
  Transmission Date: 20210717
  Serious: No
  Sender: FDA-Public Use
  Company Number: NVSC2021US126506

PATIENT
  Sex: Male

DRUGS (1)
  1. ENTRESTO [Suspect]
     Active Substance: SACUBITRIL\VALSARTAN
     Indication: CARDIAC FAILURE
     Dosage: UNK UNK, BID (24/26 MG)
     Route: 048
     Dates: start: 202004

REACTIONS (10)
  - Muscular weakness [Unknown]
  - Pain in extremity [Unknown]
  - Visual impairment [Unknown]
  - Cough [Unknown]
  - Blood pressure decreased [Unknown]
  - Joint swelling [Unknown]
  - Neuralgia [Unknown]
  - Frustration tolerance decreased [Unknown]
  - Sinus disorder [Unknown]
  - Memory impairment [Unknown]
